FAERS Safety Report 25672468 (Version 3)
Quarter: 2025Q3

REPORT INFORMATION
  Report Type: Spontaneous
  Country: US (occurrence: US)
  Receive Date: 20250812
  Receipt Date: 20250909
  Transmission Date: 20251021
  Serious: No
  Sender: SANOFI AVENTIS
  Company Number: US-SA-2025SA235927

PATIENT
  Sex: Female
  Weight: 64.09 kg

DRUGS (13)
  1. DUPIXENT [Suspect]
     Active Substance: DUPILUMAB
     Indication: Dermatitis atopic
     Dosage: 300 MG, QOW
     Route: 058
  2. GABAPENTIN [Concomitant]
     Active Substance: GABAPENTIN
  3. FAMOTIDINE [Concomitant]
     Active Substance: FAMOTIDINE
  4. Brimonidine tartrate;Timolol [Concomitant]
  5. OZURDEX [Concomitant]
     Active Substance: DEXAMETHASONE
  6. TIMOLOL MALEATE [Concomitant]
     Active Substance: TIMOLOL MALEATE
     Dosage: DAILY
  7. OMEPRAZOLE [Concomitant]
     Active Substance: OMEPRAZOLE
  8. EPINEPHRINE [Concomitant]
     Active Substance: EPINEPHRINE
  9. CEPHALEXIN [Concomitant]
     Active Substance: CEPHALEXIN
  10. ALENDRONATE SODIUM [Concomitant]
     Active Substance: ALENDRONATE SODIUM
  11. TACROLIMUS [Concomitant]
     Active Substance: TACROLIMUS
  12. TYLENOL EXTRA STRENGTH [Concomitant]
     Active Substance: ACETAMINOPHEN
  13. DEXAMETHASONE\NEOMYCIN SULFATE\POLYMYXIN B SULFATE [Concomitant]
     Active Substance: DEXAMETHASONE\NEOMYCIN SULFATE\POLYMYXIN B SULFATE

REACTIONS (4)
  - Periorbital eczema [Unknown]
  - Hordeolum [Unknown]
  - Drug hypersensitivity [Unknown]
  - Rash [Unknown]
